FAERS Safety Report 14270000 (Version 1)
Quarter: 2017Q4

REPORT INFORMATION
  Report Type: Spontaneous
  Country: FR (occurrence: FR)
  Receive Date: 20171211
  Receipt Date: 20171211
  Transmission Date: 20180321
  Serious: Yes (Hospitalization)
  Sender: FDA-Public Use
  Company Number: FR-OTSUKA-2017_022863

PATIENT
  Age: 77 Year
  Sex: Female

DRUGS (9)
  1. EXFORGE [Suspect]
     Active Substance: AMLODIPINE BESYLATE\VALSARTAN
     Indication: HYPERTENSION
     Dosage: 1 TAB, QD (LUNCH)
     Route: 048
     Dates: end: 20170627
  2. LOXAPAC [Concomitant]
     Active Substance: LOXAPINE SUCCINATE
     Indication: PSYCHOTIC DISORDER
     Dosage: 50 MG, DAILY
     Route: 048
  3. SPIRONOLACTONE. [Suspect]
     Active Substance: SPIRONOLACTONE
     Indication: HYPERTENSION
     Dosage: 1 TAB, QD (IN MORNING)
     Route: 048
     Dates: end: 20170627
  4. ABILIFY [Suspect]
     Active Substance: ARIPIPRAZOLE
     Indication: PSYCHOTIC DISORDER
     Dosage: 10 MG, QD (IN EVENING)
     Route: 048
     Dates: end: 20170627
  5. CITALOPRAM [Suspect]
     Active Substance: CITALOPRAM HYDROBROMIDE
     Indication: MANIA
     Dosage: 2 MG, DAILY
     Route: 048
     Dates: end: 20170627
  6. DEPAMIDE [Suspect]
     Active Substance: VALPROMIDE
     Indication: PSYCHOTIC DISORDER
     Dosage: 300 MG, BID
     Route: 048
  7. TEMERIT DUO [Concomitant]
     Active Substance: HYDROCHLOROTHIAZIDE\NEBIVOLOL HYDROCHLORIDE
     Indication: HYPOTHYROIDISM
     Dosage: DAILY
     Route: 048
  8. CITALOPRAM [Suspect]
     Active Substance: CITALOPRAM HYDROBROMIDE
     Indication: MAJOR DEPRESSION
     Dosage: UNK
     Route: 065
  9. LEVOTHYROX [Concomitant]
     Active Substance: LEVOTHYROXINE
     Indication: HYPERTENSION
     Dosage: 125 ?G, DAILY
     Route: 048

REACTIONS (6)
  - Fall [Recovered/Resolved]
  - Psychomotor skills impaired [Unknown]
  - Product use in unapproved indication [Unknown]
  - Confusional state [Unknown]
  - Oxygen saturation decreased [Unknown]
  - Hyponatraemia [Recovered/Resolved]

NARRATIVE: CASE EVENT DATE: 20170626
